FAERS Safety Report 18681495 (Version 3)
Quarter: 2021Q1

REPORT INFORMATION
  Report Type: Spontaneous
  Country: US (occurrence: US)
  Receive Date: 20201229
  Receipt Date: 20210115
  Transmission Date: 20210419
  Serious: No
  Sender: FDA-Public Use
  Company Number: US-TEVA-2020-US-1862701

PATIENT
  Age: 77 Year
  Sex: Female

DRUGS (3)
  1. CLONAZEPAM TEVA [Suspect]
     Active Substance: CLONAZEPAM
     Indication: ANXIETY
  2. CLONAZEPAM TEVA [Suspect]
     Active Substance: CLONAZEPAM
     Indication: CEREBRAL DISORDER
     Dosage: 1 TABLET IN THE MORNING, 1/2 TABLET AT NOON AND 1/2 TABLET AT BEDTIME
     Route: 048
     Dates: start: 20201204, end: 20201220
  3. CLONAZEPAM TEVA [Suspect]
     Active Substance: CLONAZEPAM
     Indication: PANIC ATTACK

REACTIONS (20)
  - Cough [Recovering/Resolving]
  - Product prescribing error [Unknown]
  - Wrong technique in product usage process [Unknown]
  - Sneezing [Recovering/Resolving]
  - Abdominal distension [Recovering/Resolving]
  - Condition aggravated [Recovering/Resolving]
  - Drug ineffective [Unknown]
  - Product formulation issue [Unknown]
  - Nausea [Recovering/Resolving]
  - Frequent bowel movements [Recovering/Resolving]
  - Eructation [Recovering/Resolving]
  - Fatigue [Unknown]
  - Eye swelling [Recovering/Resolving]
  - Chest discomfort [Recovering/Resolving]
  - Dyspepsia [Recovering/Resolving]
  - Anxiety [Not Recovered/Not Resolved]
  - Flatulence [Recovering/Resolving]
  - Abdominal discomfort [Recovering/Resolving]
  - Pruritus genital [Recovering/Resolving]
  - Mydriasis [Unknown]

NARRATIVE: CASE EVENT DATE: 202012
